FAERS Safety Report 5067983-0 (Version None)
Quarter: 2006Q3

REPORT INFORMATION
  Report Type: 
  Country: None (occurrence: None)
  Receive Date: 20060717
  Receipt Date: 20060224
  Transmission Date: 20061208
  Serious: Yes (Death, Hospitalization)
  Sender: FDA-Public Use
  Company Number: 2006000585

PATIENT
  Sex: Female

DRUGS (7)
  1. TARCEVA [Suspect]
     Indication: NON-SMALL CELL LUNG CANCER
     Dosage: 150MG  (QD),  ORAL
     Route: 048
     Dates: start: 20060206, end: 20060213
  2. AVASTIN [Concomitant]
  3. ALEVE [Concomitant]
  4. WARFARIN SODIUM [Concomitant]
  5. NAPROXEN [Concomitant]
  6. OXYCODONE (OXYCODONE) [Concomitant]
  7. ATIVAN [Concomitant]

REACTIONS (3)
  - CEREBRAL HAEMORRHAGE [None]
  - CEREBROVASCULAR DISORDER [None]
  - HAEMORRHAGE [None]
